FAERS Safety Report 5531936-6 (Version None)
Quarter: 2007Q4

REPORT INFORMATION
  Report Type: 
  Country: None (occurrence: None)
  Receive Date: 20071203
  Receipt Date: 20071123
  Transmission Date: 20080405
  Serious: Yes (Hospitalization, Other)
  Sender: FDA-Public Use
  Company Number: US-ROCHE-530665

PATIENT
  Age: 73 Year
  Sex: Female

DRUGS (12)
  1. BONIVA [Suspect]
     Indication: OSTEOPOROSIS
     Route: 042
  2. LASIX [Concomitant]
  3. ROCALTROL [Concomitant]
  4. NEXIUM [Concomitant]
  5. PREMARIN [Concomitant]
     Dosage: MONDAYS, WEDNESDAY AND FRIDAYS.
  6. HYDROCHLOROTHIAZIDE [Concomitant]
  7. IRON NOS [Concomitant]
  8. HYDRALAZINE HCL [Concomitant]
     Route: 048
  9. PRILOSEC [Concomitant]
  10. CITRICAL [Concomitant]
  11. DILTIAZEM CD [Concomitant]
  12. CALCITRIOL [Concomitant]

REACTIONS (4)
  - DYSPEPSIA [None]
  - HYPERTENSION [None]
  - NEPHRITIS INTERSTITIAL [None]
  - RENAL FAILURE CHRONIC [None]
